FAERS Safety Report 8613357-2 (Version None)
Quarter: 2012Q3

REPORT INFORMATION
  Report Type: 
  Country: None (occurrence: None)
  Receive Date: 20120822
  Receipt Date: 20120722
  Transmission Date: 20120928
  Serious: No
  Sender: FDA-Public Use
  Company Number: US-009507513-1207USA006530

PATIENT

DRUGS (3)
  1. OXYGEN [Concomitant]
     Indication: FIBROMA
     Dosage: UNK, UNKNOWN
  2. MIRALAX [Suspect]
     Indication: MEDICAL OBSERVATION
     Dosage: 27.6 G, QD
     Route: 048
  3. MIRALAX [Suspect]
     Indication: CONSTIPATION
     Dosage: UNK UNK, QD
     Route: 048
     Dates: start: 20120509

REACTIONS (2)
  - DRUG INEFFECTIVE [None]
  - OVERDOSE [None]
